FAERS Safety Report 16252981 (Version 2)
Quarter: 2019Q2

REPORT INFORMATION
  Report Type: Spontaneous
  Country: NO (occurrence: NO)
  Receive Date: 20190429
  Receipt Date: 20190514
  Transmission Date: 20190711
  Serious: Yes (Hospitalization)
  Sender: FDA-Public Use
  Company Number: NO-CELLTRION INC.-2019NO020541

PATIENT

DRUGS (3)
  1. MARVELON [Concomitant]
     Active Substance: DESOGESTREL\ETHINYL ESTRADIOL
     Dosage: UNK
  2. REMSIMA [Suspect]
     Active Substance: INFLIXIMAB
     Indication: SACROILIITIS
     Dosage: 350 MG
     Route: 042
     Dates: start: 20190226, end: 20190226
  3. SOLU-CORTEF [Concomitant]
     Active Substance: HYDROCORTISONE SODIUM SUCCINATE
     Dosage: UNK
     Dates: start: 20190226, end: 20190226

REACTIONS (7)
  - Conjunctival hyperaemia [Recovering/Resolving]
  - Product use in unapproved indication [Unknown]
  - Tachycardia [Recovering/Resolving]
  - Pyrexia [Recovering/Resolving]
  - Headache [Recovering/Resolving]
  - Musculoskeletal stiffness [Recovering/Resolving]
  - Rash [Recovering/Resolving]

NARRATIVE: CASE EVENT DATE: 20190226
